FAERS Safety Report 4467961-6 (Version None)
Quarter: 2004Q4

REPORT INFORMATION
  Report Type: 
  Country: None (occurrence: None)
  Receive Date: 20041001
  Receipt Date: 20031202
  Transmission Date: 20050328
  Serious: Yes (Life-Threatening, Hospitalization)
  Sender: FDA-Public Use
  Company Number: 2003-DE-06147ZA

PATIENT
  Age: 22 Year
  Sex: Male

DRUGS (1)
  1. MOBIC [Suspect]
     Indication: HAEMORRHOIDS
     Dosage: 15 MG (15 MG, 15 MG/1.5 ML)  IM
     Route: 030
     Dates: start: 20031129, end: 20031129

REACTIONS (2)
  - ANAPHYLACTIC SHOCK [None]
  - CIRCULATORY COLLAPSE [None]
